FAERS Safety Report 26137297 (Version 1)
Quarter: 2025Q4

REPORT INFORMATION
  Report Type: Spontaneous
  Country: US (occurrence: US)
  Receive Date: 20251209
  Receipt Date: 20251209
  Transmission Date: 20260117
  Serious: No
  Sender: ELI LILLY AND COMPANY
  Company Number: US-ELI_LILLY_AND_COMPANY-US202511023753

PATIENT
  Age: 60 Year
  Sex: Female

DRUGS (3)
  1. ZEPBOUND [Suspect]
     Active Substance: TIRZEPATIDE
     Indication: Weight control
     Dosage: 5 MG, UNKNOWN
     Route: 065
     Dates: start: 20250710
  2. ZEPBOUND [Suspect]
     Active Substance: TIRZEPATIDE
     Indication: Weight control
     Dosage: 7.5 MG, UNKNOWN
     Route: 065
  3. ZEPBOUND [Suspect]
     Active Substance: TIRZEPATIDE
     Indication: Weight control
     Dosage: 10 MG, UNKNOWN
     Route: 058

REACTIONS (11)
  - Vomiting projectile [Unknown]
  - Abdominal discomfort [Unknown]
  - Diarrhoea [Unknown]
  - Sleep disorder due to general medical condition, insomnia type [Unknown]
  - Abdominal distension [Unknown]
  - Injection site reaction [Unknown]
  - Epigastric discomfort [Unknown]
  - Nausea [Unknown]
  - Malaise [Unknown]
  - Eructation [Unknown]
  - Hypophagia [Unknown]

NARRATIVE: CASE EVENT DATE: 20251101
